FAERS Safety Report 10257462 (Version 1)
Quarter: 2014Q2

REPORT INFORMATION
  Report Type: Spontaneous
  Country: US (occurrence: None)
  Receive Date: 20140623
  Receipt Date: 20140623
  Transmission Date: 20141212
  Serious: Yes (Other)
  Sender: FDA-Public Use
  Company Number: None

PATIENT
  Age: 59 Year
  Sex: Male

DRUGS (1)
  1. IMIQUIMOD 5% ALDARA [Suspect]
     Indication: ACTINIC KERATOSIS
     Route: 061
     Dates: start: 20140611, end: 20140616

REACTIONS (3)
  - Influenza like illness [None]
  - Pain [None]
  - Pain [None]
